FAERS Safety Report 9226724 (Version 1)
Quarter: 2013Q2

REPORT INFORMATION
  Report Type: Spontaneous
  Country: US (occurrence: None)
  Receive Date: 20130410
  Receipt Date: 20130410
  Transmission Date: 20140414
  Serious: Yes (Other)
  Sender: FDA-Public Use
  Company Number: 2013-0849

PATIENT
  Age: 79 Year
  Sex: Female
  Weight: 72.57 kg

DRUGS (5)
  1. DYSPORT [Suspect]
     Indication: SKIN WRINKLING
     Dosage: 50 UNITS 50 UNITS, 1 IN 1 CYCLE(S), INTRAMUSCULAR
     Route: 030
     Dates: start: 20121001, end: 20121001
  2. PERYLANE -L HYALURONIC ACID [Suspect]
     Indication: SKIN COSMETIC PROCEDURE
     Dates: start: 20121001
  3. ANTIDEPRESSANT ANTIDEPRESSANTS [Concomitant]
  4. ANTIHYPERTENSIVE? ANTIHYPERTENSIVES [Concomitant]
  5. ANTI-ANXIETY (ALL OTHER THERAPEUTIC PRODUCTS) [Concomitant]

REACTIONS (4)
  - Lacrimation increased [None]
  - Dry eye [None]
  - Dacryostenosis acquired [None]
  - Inflammation [None]
